FAERS Safety Report 20508610 (Version 1)
Quarter: 2022Q1

REPORT INFORMATION
  Report Type: Spontaneous
  Country: AU (occurrence: AU)
  Receive Date: 20220223
  Receipt Date: 20220223
  Transmission Date: 20220423
  Serious: No
  Sender: FDA-Public Use
  Company Number: AU-LUPIN PHARMACEUTICALS INC.-2022-02253

PATIENT
  Age: 64 Year
  Sex: Male

DRUGS (6)
  1. BETAMETHASONE [Suspect]
     Active Substance: BETAMETHASONE
     Indication: Pityriasis rubra pilaris
     Dosage: UNK
     Route: 061
  2. METHYLPREDNISOLONE [Suspect]
     Active Substance: METHYLPREDNISOLONE
     Indication: Pityriasis rubra pilaris
     Dosage: UNK
     Route: 061
  3. ACITRETIN [Suspect]
     Active Substance: ACITRETIN
     Indication: Pityriasis rubra pilaris
     Dosage: UNK, QD (10-50 MG/DAY)
     Route: 065
     Dates: start: 2009, end: 2010
  4. ADALIMUMAB [Suspect]
     Active Substance: ADALIMUMAB
     Indication: Pityriasis rubra pilaris
     Dosage: 40 MG BIWEEKLY
     Route: 065
     Dates: start: 2012, end: 2013
  5. METHOTREXATE [Suspect]
     Active Substance: METHOTREXATE
     Indication: Pityriasis rubra pilaris
     Dosage: 10 MG WEEK
     Route: 065
     Dates: start: 2012
  6. MOMETASONE FUROATE [Suspect]
     Active Substance: MOMETASONE FUROATE
     Indication: Pityriasis rubra pilaris
     Dosage: UNK
     Route: 061

REACTIONS (1)
  - Off label use [Unknown]
